FAERS Safety Report 7440993-1 (Version None)
Quarter: 2011Q2

REPORT INFORMATION
  Report Type: 
  Country: None (occurrence: None)
  Receive Date: 20110427
  Receipt Date: 20110418
  Transmission Date: 20111010
  Serious: Yes (Hospitalization, Other)
  Sender: FDA-Public Use
  Company Number: BR-ASTRAZENECA-2011SE06810

PATIENT
  Age: 68 Year
  Sex: Male

DRUGS (15)
  1. CARBAMAZEPINE [Concomitant]
     Route: 048
     Dates: start: 20080101
  2. MONOCORDIL [Concomitant]
     Route: 048
  3. NEOZINE [Concomitant]
     Route: 048
     Dates: start: 20080101
  4. MANIVASC [Concomitant]
     Indication: HYPERTENSION
     Route: 048
  5. LOSARTAN POTASSIUM [Concomitant]
     Indication: HYPERTENSION
     Route: 048
  6. SYMBICORT [Suspect]
     Dosage: 160/4.5 MCG
     Route: 055
     Dates: start: 20080101
  7. SEROQUEL [Suspect]
     Route: 048
  8. CRESTOR [Suspect]
     Indication: HYPERCHOLESTEROLAEMIA
     Route: 048
     Dates: start: 20050101
  9. RIVOTRIL [Concomitant]
     Indication: SEDATION
     Route: 048
     Dates: start: 20080101
  10. HALDOL [Concomitant]
     Route: 048
  11. VASTAREL [Concomitant]
     Route: 048
  12. SEROQUEL [Suspect]
     Route: 048
  13. NEOZINE [Concomitant]
     Indication: SEDATION
     Route: 048
     Dates: end: 20080101
  14. SEROQUEL [Suspect]
     Indication: BIPOLAR DISORDER
     Route: 048
     Dates: start: 20070101
  15. SEROQUEL [Suspect]
     Indication: OBSESSIVE-COMPULSIVE DISORDER
     Route: 048
     Dates: start: 20070101

REACTIONS (13)
  - COLLAPSE OF LUNG [None]
  - PULMONARY OEDEMA [None]
  - TRANSIENT ISCHAEMIC ATTACK [None]
  - BALANCE DISORDER [None]
  - RESTLESSNESS [None]
  - INSOMNIA [None]
  - HYPOKINESIA [None]
  - DIABETES MELLITUS [None]
  - BIPOLAR DISORDER [None]
  - LUNG INFECTION [None]
  - COUGH [None]
  - DIABETES MELLITUS INADEQUATE CONTROL [None]
  - OBSESSIVE-COMPULSIVE DISORDER [None]
